FAERS Safety Report 5272122-7 (Version None)
Quarter: 2007Q1

REPORT INFORMATION
  Report Type: 
  Country: None (occurrence: None)
  Receive Date: 20070320
  Receipt Date: 20070320
  Transmission Date: 20070707
  Serious: Yes (Hospitalization)
  Sender: FDA-Public Use
  Company Number: None

PATIENT
  Age: 66 Year
  Sex: Female
  Weight: 81.8 kg

DRUGS (1)
  1. NAPROXEN [Suspect]
     Indication: SUICIDE ATTEMPT
     Dates: start: 20070223, end: 20070223

REACTIONS (5)
  - ABDOMINAL PAIN UPPER [None]
  - INTENTIONAL OVERDOSE [None]
  - NAUSEA [None]
  - SUICIDE ATTEMPT [None]
  - VOMITING [None]
